FAERS Safety Report 8532025-9 (Version None)
Quarter: 2012Q3

REPORT INFORMATION
  Report Type: 
  Country: None (occurrence: None)
  Receive Date: 20120723
  Receipt Date: 20120719
  Transmission Date: 20120928
  Serious: Yes (Life-Threatening, Hospitalization, Other)
  Sender: FDA-Public Use
  Company Number: NL-ABBOTT-12P-114-0958363-01

PATIENT
  Sex: Female
  Weight: 84 kg

DRUGS (8)
  1. ENALAPRIL MALEATE [Concomitant]
     Indication: HYPERTENSION
  2. HYDROXYZINE [Concomitant]
     Indication: PRURITUS
  3. CLOPIDOGREL [Concomitant]
     Indication: AORTIC ANEURYSM
     Dates: start: 20110315
  4. DOVOBET [Concomitant]
     Indication: PSORIASIS
  5. EMOVATE [Concomitant]
     Indication: PSORIASIS
  6. HUMIRA [Suspect]
     Indication: PSORIASIS
     Route: 058
     Dates: start: 20091221, end: 20091221
  7. HUMIRA [Suspect]
     Route: 058
  8. ACETYLSALICYLZUUR [Concomitant]
     Indication: AORTIC ANEURYSM
     Dates: start: 20090129

REACTIONS (3)
  - ELECTROCARDIOGRAM CHANGE [None]
  - DYSPNOEA [None]
  - PULMONARY EMBOLISM [None]
